FAERS Safety Report 22113312 (Version 1)
Quarter: 2023Q1

REPORT INFORMATION
  Report Type: Spontaneous
  Country: TR (occurrence: TR)
  Receive Date: 20230320
  Receipt Date: 20230320
  Transmission Date: 20230417
  Serious: Yes (Life-Threatening, Other)
  Sender: FDA-Public Use
  Company Number: TR-BRISTOL-MYERS SQUIBB COMPANY-2023-037856

PATIENT
  Age: 33 Year
  Sex: Male

DRUGS (1)
  1. NIVOLUMAB [Suspect]
     Active Substance: NIVOLUMAB
     Indication: Thymoma

REACTIONS (5)
  - Immune-mediated myocarditis [Recovering/Resolving]
  - Myasthenia gravis [Recovering/Resolving]
  - Immune-mediated myositis [Recovering/Resolving]
  - Overlap syndrome [Recovering/Resolving]
  - Off label use [Unknown]
